FAERS Safety Report 6503182-0 (Version None)
Quarter: 2009Q4

REPORT INFORMATION
  Report Type: 
  Country: None (occurrence: None)
  Receive Date: 20091217
  Receipt Date: 20091214
  Transmission Date: 20100525
  Serious: Yes (Death)
  Sender: FDA-Public Use
  Company Number: JP-JNJFOC-20091201996

PATIENT

DRUGS (1)
  1. DUROTEP PATCH [Suspect]
     Indication: CANCER PAIN
     Route: 062

REACTIONS (2)
  - DISEASE PROGRESSION [None]
  - RESTLESSNESS [None]
